FAERS Safety Report 16044272 (Version 4)
Quarter: 2019Q3

REPORT INFORMATION
  Report Type: Spontaneous
  Country: JP (occurrence: JP)
  Receive Date: 20190306
  Receipt Date: 20190719
  Transmission Date: 20191004
  Serious: Yes (Death, Hospitalization, Other)
  Sender: FDA-Public Use
  Company Number: PHJP2019JP002736

PATIENT
  Age: 75 Year
  Sex: Male

DRUGS (1)
  1. VOTRIENT [Suspect]
     Active Substance: PAZOPANIB HYDROCHLORIDE
     Indication: RENAL CELL CARCINOMA
     Dosage: 800 MG, UNK
     Route: 048
     Dates: start: 20180123, end: 20180309

REACTIONS (4)
  - Blood bilirubin increased [Fatal]
  - Aspartate aminotransferase increased [Fatal]
  - General physical health deterioration [Unknown]
  - Alanine aminotransferase increased [Fatal]

NARRATIVE: CASE EVENT DATE: 20180309
